FAERS Safety Report 11069921 (Version 1)
Quarter: 2015Q2

REPORT INFORMATION
  Report Type: Spontaneous
  Country: ES (occurrence: ES)
  Receive Date: 20150427
  Receipt Date: 20150427
  Transmission Date: 20150821
  Serious: Yes (Other)
  Sender: FDA-Public Use
  Company Number: ES-JNJFOC-20150419397

PATIENT
  Age: 67 Year
  Sex: Male
  Weight: 100 kg

DRUGS (3)
  1. OMEPRAZOLE. [Concomitant]
     Active Substance: OMEPRAZOLE
     Indication: PRODUCT USED FOR UNKNOWN INDICATION
     Route: 065
     Dates: start: 20130808
  2. FORMOTEROL W/BUDESONIDE [Concomitant]
     Active Substance: BUDESONIDE\FORMOTEROL
     Indication: CHRONIC OBSTRUCTIVE PULMONARY DISEASE
     Route: 065
     Dates: start: 20120330
  3. XARELTO [Suspect]
     Active Substance: RIVAROXABAN
     Indication: CARDIOVERSION
     Route: 048
     Dates: start: 20150224, end: 20150323

REACTIONS (3)
  - Asthenia [Recovered/Resolved]
  - Musculoskeletal pain [Recovered/Resolved]
  - Muscle spasms [Recovered/Resolved]

NARRATIVE: CASE EVENT DATE: 20150225
